FAERS Safety Report 21774973 (Version 1)
Quarter: 2022Q4

REPORT INFORMATION
  Report Type: Spontaneous
  Country: GB (occurrence: GB)
  Receive Date: 20221225
  Receipt Date: 20221225
  Transmission Date: 20230113
  Serious: Yes (Disabling)
  Sender: FDA-Public Use
  Company Number: GB-AUROBINDO-AUR-APL-2022-054710

PATIENT
  Age: 37 Year
  Sex: Male
  Weight: 98 kg

DRUGS (2)
  1. GABAPENTIN [Suspect]
     Active Substance: GABAPENTIN
     Indication: Adverse drug reaction
     Dosage: 1600 MILLIGRAM, TWO TIMES A DAY
     Route: 065
     Dates: end: 202202
  2. GABAPENTIN [Suspect]
     Active Substance: GABAPENTIN
     Dosage: 800 MILLIGRAM, TWO TIMES A DAY
     Route: 065
     Dates: end: 20221208

REACTIONS (2)
  - Mood swings [Recovering/Resolving]
  - Agitated depression [Unknown]
